FAERS Safety Report 15736031 (Version 1)
Quarter: 2018Q4

REPORT INFORMATION
  Report Type: Spontaneous
  Country: US (occurrence: US)
  Receive Date: 20181218
  Receipt Date: 20181218
  Transmission Date: 20190205
  Serious: No
  Sender: FDA-Public Use
  Company Number: US-TEVA-2018-US-986124

PATIENT
  Sex: Female

DRUGS (1)
  1. NIACIN. [Suspect]
     Active Substance: NIACIN
     Route: 065

REACTIONS (2)
  - Rash [Unknown]
  - Drug hypersensitivity [Unknown]
